FAERS Safety Report 5828956-0 (Version None)
Quarter: 2008Q3

REPORT INFORMATION
  Report Type: 
  Country: None (occurrence: None)
  Receive Date: 20080731
  Receipt Date: 20080718
  Transmission Date: 20090109
  Serious: Yes (Hospitalization)
  Sender: FDA-Public Use
  Company Number: PHBS2008FR04969

PATIENT
  Age: 77 Year
  Sex: Female

DRUGS (8)
  1. IMATINIB MESYLATE [Suspect]
     Indication: CHRONIC MYELOID LEUKAEMIA
     Dosage: 400 MG, DAY
  2. ALLOPURINOL [Suspect]
     Indication: CHRONIC MYELOID LEUKAEMIA
     Dosage: 300 MG, DAY
  3. AMLODIPINE [Concomitant]
  4. ALENDRONATE SODIUM [Concomitant]
  5. BROMAZEPAM [Concomitant]
  6. OMEPRAZOLE [Concomitant]
  7. FENTANYL-100 [Concomitant]
  8. MACROGOL 4000 [Concomitant]

REACTIONS (20)
  - BLISTER [None]
  - CHEILITIS [None]
  - DERMATITIS BULLOUS [None]
  - DRUG RASH WITH EOSINOPHILIA AND SYSTEMIC SYMPTOMS [None]
  - ECZEMA [None]
  - EOSINOPHILIA [None]
  - EPIDERMAL NECROSIS [None]
  - FACE OEDEMA [None]
  - LEUKOCYTOSIS [None]
  - LYMPHADENOPATHY [None]
  - MUCOSAL EROSION [None]
  - NEUTROPHILIA [None]
  - PURPURA [None]
  - PYREXIA [None]
  - RASH ERYTHEMATOUS [None]
  - RASH GENERALISED [None]
  - RASH MACULAR [None]
  - RASH PAPULAR [None]
  - RASH PUSTULAR [None]
  - SKIN OEDEMA [None]
